FAERS Safety Report 10582454 (Version 5)
Quarter: 2015Q2

REPORT INFORMATION
  Report Type: Report from Study
  Country: US (occurrence: US)
  Receive Date: 20141113
  Receipt Date: 20150625
  Transmission Date: 20150821
  Serious: Yes (Other)
  Sender: FDA-Public Use
  Company Number: US-SA-2014SA141277

PATIENT
  Age: 47 Year
  Sex: Male

DRUGS (1)
  1. AUBAGIO [Suspect]
     Active Substance: TERIFLUNOMIDE
     Indication: MULTIPLE SCLEROSIS
     Route: 048
     Dates: start: 20140911

REACTIONS (7)
  - Cognitive disorder [Unknown]
  - Muscular weakness [Unknown]
  - Dry mouth [Unknown]
  - Temperature intolerance [Unknown]
  - Memory impairment [Unknown]
  - Unevaluable event [Unknown]
  - Dizziness [Unknown]
